FAERS Safety Report 10255982 (Version 1)
Quarter: 2014Q2

REPORT INFORMATION
  Report Type: Spontaneous
  Country: US (occurrence: None)
  Receive Date: 20140530
  Receipt Date: 20140530
  Transmission Date: 20141212
  Serious: Yes (Other)
  Sender: FDA-Public Use
  Company Number: 2013036972

PATIENT
  Sex: Female

DRUGS (1)
  1. HIZENTRA (IMMUNOGLOBULIN HUMAN NORMAL) [Suspect]
     Indication: IMMUNODEFICIENCY COMMON VARIABLE
     Dosage: 1X/WEEK SUBCUTANEOUS
     Route: 058
     Dates: start: 20130712

REACTIONS (5)
  - Headache [None]
  - Pyrexia [None]
  - Musculoskeletal stiffness [None]
  - Vomiting [None]
  - Cough [None]
